FAERS Safety Report 7821623-3 (Version None)
Quarter: 2011Q4

REPORT INFORMATION
  Report Type: 
  Country: None (occurrence: None)
  Receive Date: 20111018
  Receipt Date: 20100906
  Transmission Date: 20120403
  Serious: No
  Sender: FDA-Public Use
  Company Number: US-ASTRAZENECA-2010SE24844

PATIENT
  Age: 66 Year
  Sex: Female
  Weight: 76.2 kg

DRUGS (7)
  1. SYMBICORT [Suspect]
     Dosage: TWO TIMES A DAY
     Route: 055
  2. WELLBUTRIN [Concomitant]
  3. LEVOTHYROXINE SODIUM [Concomitant]
  4. SYMBICORT [Suspect]
     Dosage: BID
     Route: 055
  5. NEXIUM [Suspect]
     Dosage: EVERY OTHER DAY
     Route: 048
  6. NEXIUM [Suspect]
     Dosage: DAILY
     Route: 048
  7. VITAMIN TAB [Concomitant]

REACTIONS (5)
  - APHAGIA [None]
  - DYSPHONIA [None]
  - GASTROOESOPHAGEAL REFLUX DISEASE [None]
  - DRUG DOSE OMISSION [None]
  - ASTHMA [None]
